FAERS Safety Report 4579759-9 (Version None)
Quarter: 2005Q1

REPORT INFORMATION
  Report Type: 
  Country: None (occurrence: None)
  Receive Date: 20050210
  Receipt Date: 20050126
  Transmission Date: 20050727
  Serious: Yes (Death)
  Sender: FDA-Public Use
  Company Number: 2004AL000743

PATIENT
  Age: 46 Year
  Sex: Female

DRUGS (8)
  1. CLONIDINE HCL [Suspect]
     Dosage: PO
     Route: 048
  2. METFORMIN HYDROCHLORIDE [Suspect]
     Dosage: PO
     Route: 048
  3. ACETAMINOPHEN [Suspect]
  4. ACETAMINOPHEN [Suspect]
  5. AMLODIPINE [Suspect]
  6. ETHANOL [Suspect]
  7. COCAINE [Suspect]
  8. LANSOPRAZOLE [Suspect]

REACTIONS (9)
  - BLOOD PRESSURE DECREASED [None]
  - CARDIOMYOPATHY [None]
  - COMA [None]
  - HEART RATE DECREASED [None]
  - HYPOTHERMIA [None]
  - LOSS OF CONSCIOUSNESS [None]
  - METABOLIC ACIDOSIS [None]
  - MULTIPLE DRUG OVERDOSE [None]
  - PUPIL FIXED [None]
